FAERS Safety Report 4733876-9 (Version None)
Quarter: 2005Q3

REPORT INFORMATION
  Report Type: 
  Country: None (occurrence: None)
  Receive Date: 20050729
  Receipt Date: 20050726
  Transmission Date: 20060218
  Serious: Yes (Other)
  Sender: FDA-Public Use
  Company Number: 200510178BFR

PATIENT
  Age: 56 Year
  Sex: Female

DRUGS (2)
  1. MOXIFLOXACIN HYDROCHLORIDE [Suspect]
     Indication: SINUSITIS
     Dosage: QD, ORAL
     Route: 048
     Dates: start: 20050223, end: 20050305
  2. CORTICOSTEROIDS (NOS) [Concomitant]

REACTIONS (2)
  - CORNEAL DISORDER [None]
  - VISUAL ACUITY REDUCED [None]
